FAERS Safety Report 7830057-7 (Version None)
Quarter: 2011Q4

REPORT INFORMATION
  Report Type: 
  Country: None (occurrence: None)
  Receive Date: 20111021
  Receipt Date: 20111003
  Transmission Date: 20120403
  Serious: Yes (Death, Hospitalization)
  Sender: FDA-Public Use
  Company Number: US-ASTELLAS-2011US002380

PATIENT
  Sex: Female
  Weight: 74 kg

DRUGS (3)
  1. GEMCITABINE HYDROCHLORIDE [Suspect]
     Indication: ENDOMETRIAL CANCER
     Dosage: 750 MG/KG, CYCLIC
     Route: 042
     Dates: start: 20110415, end: 20110429
  2. ERLOTINIB HYDROCHLORIDE [Suspect]
     Indication: ENDOMETRIAL CANCER
     Dosage: 75 MG, UID/QD
     Route: 048
     Dates: start: 20110415, end: 20110513
  3. GDC-0449 [Suspect]
     Indication: ENDOMETRIAL CANCER
     Dosage: 150 MG, UID/QD
     Route: 048
     Dates: start: 20110415, end: 20110513

REACTIONS (6)
  - SMALL INTESTINAL OBSTRUCTION [None]
  - EMBOLISM [None]
  - BLOOD ALKALINE PHOSPHATASE INCREASED [None]
  - NEOPLASM [None]
  - OFF LABEL USE [None]
  - HYPONATRAEMIA [None]
